FAERS Safety Report 6576434-6 (Version None)
Quarter: 2010Q1

REPORT INFORMATION
  Report Type: 
  Country: None (occurrence: None)
  Receive Date: 20100210
  Receipt Date: 20100201
  Transmission Date: 20100710
  Serious: Yes (Hospitalization)
  Sender: FDA-Public Use
  Company Number: PHEH2009US17875

PATIENT
  Sex: Male

DRUGS (3)
  1. EXJADE [Suspect]
     Indication: IRON OVERLOAD
     Dosage: 2000 MG, QD
     Route: 048
     Dates: start: 20080402, end: 20090821
  2. EXJADE [Suspect]
     Dosage: 2500 MG, QD
     Dates: start: 20090821, end: 20091223
  3. CEFTRIAXONE [Concomitant]
     Dosage: 1000 MG, QD
     Route: 042
     Dates: start: 20091217, end: 20091222

REACTIONS (7)
  - ARTHRALGIA [None]
  - BLOOD CREATININE INCREASED [None]
  - GOUT [None]
  - JOINT SWELLING [None]
  - MALAISE [None]
  - PNEUMONIA [None]
  - RENAL FAILURE ACUTE [None]
